FAERS Safety Report 21582501 (Version 1)
Quarter: 2022Q4

REPORT INFORMATION
  Report Type: Spontaneous
  Country: US (occurrence: US)
  Receive Date: 20221111
  Receipt Date: 20221111
  Transmission Date: 20230113
  Serious: Yes (Life-Threatening, Hospitalization, Other)
  Sender: FDA-Public Use
  Company Number: US-APOTEX-2022AP015246

PATIENT
  Age: 65 Year
  Sex: Female

DRUGS (3)
  1. CLOPIDOGREL [Suspect]
     Active Substance: CLOPIDOGREL BISULFATE
     Indication: Antiplatelet therapy
     Dosage: UNK
     Route: 065
  2. ASPIRIN [Suspect]
     Active Substance: ASPIRIN
     Indication: Antiplatelet therapy
     Dosage: UNK
     Route: 065
  3. HEPARIN [Suspect]
     Active Substance: HEPARIN SODIUM
     Indication: Antiplatelet therapy
     Dosage: UNK, 4000 UNITS
     Route: 065

REACTIONS (7)
  - Coagulopathy [Recovering/Resolving]
  - Pharyngeal swelling [Recovering/Resolving]
  - Skin laceration [Recovering/Resolving]
  - Arterial haemorrhage [Recovering/Resolving]
  - Pharyngeal haemorrhage [Recovering/Resolving]
  - Haematoma [Recovering/Resolving]
  - Muscle haemorrhage [Recovering/Resolving]
